FAERS Safety Report 8207091-0 (Version None)
Quarter: 2012Q1

REPORT INFORMATION
  Report Type: 
  Country: None (occurrence: None)
  Receive Date: 20120312
  Receipt Date: 20120229
  Transmission Date: 20120608
  Serious: Yes (Other)
  Sender: FDA-Public Use
  Company Number: 1214137

PATIENT
  Age: 8 Year
  Sex: Female

DRUGS (2)
  1. CEFOTAXIME [Concomitant]
  2. VANCOMYCIN HYDROCHLORIDE [Suspect]
     Indication: WOUND DEHISCENCE
     Dosage: 400 MG TOTAL, INTRAVENOUS (NOT OTHERWISE SPECIFIED)
     Route: 042
     Dates: start: 20120225, end: 20120225

REACTIONS (6)
  - PRURITUS [None]
  - COUGH [None]
  - BRONCHOSPASM [None]
  - PALATAL OEDEMA [None]
  - HYPERSENSITIVITY [None]
  - OEDEMA MOUTH [None]
